FAERS Safety Report 15600621 (Version 1)
Quarter: 2018Q4

REPORT INFORMATION
  Report Type: Spontaneous
  Country: IT (occurrence: IT)
  Receive Date: 20181109
  Receipt Date: 20181109
  Transmission Date: 20190205
  Serious: Yes (Hospitalization)
  Sender: FDA-Public Use
  Company Number: IT-BEH-2010026521

PATIENT
  Age: 6 Year
  Sex: Female

DRUGS (7)
  1. HAEMATE P [Suspect]
     Active Substance: ANTIHEMOPHILIC FACTOR HUMAN
     Indication: VON WILLEBRAND^S DISEASE
     Dosage: {1000 IU
     Route: 042
     Dates: start: 20100914, end: 20100921
  2. HAEMATE P [Suspect]
     Active Substance: ANTIHEMOPHILIC FACTOR HUMAN
     Dosage: 500 IU, UNK
     Route: 065
     Dates: end: 2009
  3. PANTOPRAZOLO [Concomitant]
     Active Substance: PANTOPRAZOLE SODIUM
  4. RANITIDINE. [Concomitant]
     Active Substance: RANITIDINE
  5. CEFTRIAXONE. [Concomitant]
     Active Substance: CEFTRIAXONE
  6. HAEMATE P [Suspect]
     Active Substance: ANTIHEMOPHILIC FACTOR HUMAN
     Dosage: 1000 IU, UNK
     Route: 065
     Dates: start: 2010
  7. IRON [Concomitant]
     Active Substance: IRON

REACTIONS (4)
  - Anaphylactic reaction [Unknown]
  - Pyrexia [Unknown]
  - Chills [Unknown]
  - Von Willebrand^s factor antibody positive [Unknown]

NARRATIVE: CASE EVENT DATE: 20100918
